FAERS Safety Report 5129801-1 (Version None)
Quarter: 2006Q4

REPORT INFORMATION
  Report Type: 
  Country: None (occurrence: None)
  Receive Date: 20061012
  Receipt Date: 20060929
  Transmission Date: 20070319
  Serious: Yes (Hospitalization)
  Sender: FDA-Public Use
  Company Number: 230668

PATIENT
  Sex: Female

DRUGS (1)
  1. MABTHERA (RITUXIMAB)CONC FOR SOLUTION FOR INFUSION [Suspect]
     Indication: RHEUMATOID ARTHRITIS

REACTIONS (3)
  - ATRIOVENTRICULAR BLOCK [None]
  - INFUSION RELATED REACTION [None]
  - SWELLING FACE [None]
